FAERS Safety Report 8006942-2 (Version None)
Quarter: 2011Q4

REPORT INFORMATION
  Report Type: 
  Country: None (occurrence: None)
  Receive Date: 20111227
  Receipt Date: 20111219
  Transmission Date: 20120403
  Serious: Yes (Hospitalization, Other)
  Sender: FDA-Public Use
  Company Number: US-BAYER-2011-123076

PATIENT
  Age: 39 Year
  Sex: Female
  Weight: 68 kg

DRUGS (4)
  1. YASMIN [Suspect]
  2. ZOLOFT [Concomitant]
     Indication: DEPRESSION
     Dosage: 100 MG, QD
     Dates: start: 19940101
  3. YASMIN [Suspect]
     Indication: PREMENSTRUAL SYNDROME
     Dosage: UNK
     Dates: start: 20070401, end: 20090401
  4. QVAR 40 [Concomitant]
     Indication: ASTHMA
     Dosage: 4 PUFF(S), QD
     Dates: start: 20090401

REACTIONS (8)
  - DEEP VEIN THROMBOSIS [None]
  - INTESTINAL RESECTION [None]
  - TRAUMATIC LIVER INJURY [None]
  - SPLENECTOMY [None]
  - ARTHRALGIA [None]
  - BLINDNESS UNILATERAL [None]
  - PULMONARY EMBOLISM [None]
  - RETINAL VASCULAR THROMBOSIS [None]
